FAERS Safety Report 18274833 (Version 1)
Quarter: 2020Q3

REPORT INFORMATION
  Report Type: Report from Study
  Country: MX (occurrence: MX)
  Receive Date: 20200916
  Receipt Date: 20200916
  Transmission Date: 20201103
  Serious: Yes (Other)
  Sender: FDA-Public Use
  Company Number: MX-JNJFOC-20200907392

PATIENT
  Age: 46 Year
  Sex: Male
  Weight: 79 kg

DRUGS (1)
  1. SIMPONI [Suspect]
     Active Substance: GOLIMUMAB
     Indication: ANKYLOSING SPONDYLITIS
     Route: 058
     Dates: start: 20170101

REACTIONS (3)
  - Injection site inflammation [Unknown]
  - Tuberculosis [Unknown]
  - Injection site pruritus [Unknown]

NARRATIVE: CASE EVENT DATE: 202008
